FAERS Safety Report 24209176 (Version 1)
Quarter: 2024Q3

REPORT INFORMATION
  Report Type: Spontaneous
  Country: US (occurrence: None)
  Receive Date: 20240813
  Receipt Date: 20240813
  Transmission Date: 20241017
  Serious: Yes (Other)
  Sender: Public
  Company Number: None

PATIENT
  Age: 51 Year
  Sex: Female
  Weight: 88.2 kg

DRUGS (10)
  1. AIMOVIG [Suspect]
     Active Substance: ERENUMAB-AOOE
     Indication: Migraine prophylaxis
     Dosage: OTHER QUANTITY : 1 INJECTION(S);?OTHER FREQUENCY : 1 A MONTH;?
     Route: 058
     Dates: start: 20240805, end: 20240805
  2. VERAPAMIL [Concomitant]
  3. XARELTO [Concomitant]
     Active Substance: RIVAROXABAN
  4. IMITREX [Concomitant]
     Active Substance: SUMATRIPTAN SUCCINATE
  5. ALBUTEROL [Concomitant]
     Active Substance: ALBUTEROL
  6. Vit. B [Concomitant]
  7. VITAMIN D NOS [Concomitant]
     Active Substance: CHOLECALCIFEROL\ERGOCALCIFEROL
  8. MAGNESIUM [Concomitant]
  9. BLACK COHOSH [Concomitant]
     Active Substance: BLACK COHOSH
  10. VITAMIN E [Concomitant]
     Active Substance: .ALPHA.-TOCOPHEROL

REACTIONS (5)
  - Neck pain [None]
  - Dizziness [None]
  - Palpitations [None]
  - Blood pressure increased [None]
  - Illness [None]

NARRATIVE: CASE EVENT DATE: 20240807
